FAERS Safety Report 13984111 (Version 1)
Quarter: 2017Q3

REPORT INFORMATION
  Report Type: Other
  Country: US (occurrence: US)
  Receive Date: 20170918
  Receipt Date: 20170918
  Transmission Date: 20171128
  Serious: Yes (Other)
  Sender: FDA-Public Use
  Company Number: US-IMPRIMIS NJOF-2026686

PATIENT
  Sex: Female

DRUGS (1)
  1. TRIAMCINOLONE-MOXIFLOXACIN-VANCOMYCIN [Suspect]
     Active Substance: MOXIFLOXACIN\TRIAMCINOLONE\VANCOMYCIN
     Route: 047

REACTIONS (1)
  - Ocular vasculitis [Unknown]
